FAERS Safety Report 9168906 (Version 1)
Quarter: 2013Q1

REPORT INFORMATION
  Report Type: Spontaneous
  Country: US (occurrence: None)
  Receive Date: 20130305
  Receipt Date: 20130305
  Transmission Date: 20140127
  Serious: No
  Sender: FDA-Public Use
  Company Number: B0871684A

PATIENT
  Sex: Female

DRUGS (1)
  1. VENTOLIN UNSPECIFIED INHALER DEVICE (ALBUTEROL SULFATE) [Suspect]
     Indication: WHEEZING
     Route: 055

REACTIONS (3)
  - Respiratory distress [None]
  - Condition aggravated [None]
  - Wheezing [None]
